FAERS Safety Report 8218968-4 (Version None)
Quarter: 2012Q1

REPORT INFORMATION
  Report Type: 
  Country: None (occurrence: None)
  Receive Date: 20120319
  Receipt Date: 20120313
  Transmission Date: 20120608
  Serious: Yes (Hospitalization)
  Sender: FDA-Public Use
  Company Number: KR-MERCK-1203KOR00018

PATIENT

DRUGS (1)
  1. PROSCAR [Suspect]
     Route: 048
     Dates: start: 20120210

REACTIONS (1)
  - GASTRIC HAEMORRHAGE [None]
